FAERS Safety Report 4426568-7 (Version None)
Quarter: 2004Q3

REPORT INFORMATION
  Report Type: 
  Country: None (occurrence: None)
  Receive Date: 20040813
  Receipt Date: 20040802
  Transmission Date: 20050211
  Serious: Yes (Hospitalization)
  Sender: FDA-Public Use
  Company Number: 2004UW16398

PATIENT
  Age: 61 Year
  Sex: Male

DRUGS (7)
  1. CRESTOR [Suspect]
     Dosage: 10 MG DAILY PO
     Route: 048
     Dates: start: 20040719, end: 20040720
  2. LIPITOR [Concomitant]
  3. LANTUS [Concomitant]
  4. TOPROL-XL [Concomitant]
  5. HYZAAR [Concomitant]
  6. METFORMIN HCL [Concomitant]
  7. NOVOLOG [Concomitant]

REACTIONS (1)
  - RHABDOMYOLYSIS [None]
